FAERS Safety Report 6824039-1 (Version None)
Quarter: 2010Q3

REPORT INFORMATION
  Report Type: 
  Country: None (occurrence: None)
  Receive Date: 20100708
  Receipt Date: 20061205
  Transmission Date: 20110219
  Serious: No
  Sender: FDA-Public Use
  Company Number: US-PFIZER INC-2006114860

PATIENT
  Age: 46 Year
  Sex: Female
  Weight: 54.4 kg

DRUGS (3)
  1. CHANTIX [Suspect]
     Indication: SMOKING CESSATION THERAPY
     Route: 048
     Dates: start: 20060917
  2. VICODIN [Concomitant]
     Route: 048
  3. CARISOPRODOL [Concomitant]
     Route: 048

REACTIONS (2)
  - TONGUE COATED [None]
  - TONGUE DISORDER [None]
